FAERS Safety Report 6254095-3 (Version None)
Quarter: 2009Q2

REPORT INFORMATION
  Report Type: 
  Country: None (occurrence: None)
  Receive Date: 20090630
  Receipt Date: 20090630
  Transmission Date: 20091009
  Serious: No
  Sender: FDA-Public Use
  Company Number: None

PATIENT
  Age: 53 Year
  Sex: Male
  Weight: 101.36 kg

DRUGS (1)
  1. CETIRIZINE [Suspect]
     Dosage: 10 MG EVERY DAY PO
     Route: 048
     Dates: start: 20090604, end: 20090612

REACTIONS (2)
  - FATIGUE [None]
  - SEDATION [None]
